FAERS Safety Report 17933416 (Version 3)
Quarter: 2020Q4

REPORT INFORMATION
  Report Type: Report from Study
  Country: US (occurrence: US)
  Receive Date: 20200624
  Receipt Date: 20201218
  Transmission Date: 20210113
  Serious: Yes (Disabling, Other)
  Sender: FDA-Public Use
  Company Number: US-REGENERON PHARMACEUTICALS, INC.-2020-44200

PATIENT

DRUGS (8)
  1. ASPIRIN                            /00002701/ [Concomitant]
     Active Substance: ASPIRIN
     Indication: PRODUCT USED FOR UNKNOWN INDICATION
     Route: 065
  2. INSULIN [Concomitant]
     Active Substance: INSULIN NOS
     Indication: PRODUCT USED FOR UNKNOWN INDICATION
     Route: 065
  3. GLIPIZIDE. [Concomitant]
     Active Substance: GLIPIZIDE
     Indication: PRODUCT USED FOR UNKNOWN INDICATION
     Route: 065
  4. TYLENOL [Concomitant]
     Active Substance: ACETAMINOPHEN
     Indication: EYE PAIN
     Route: 065
  5. EYLEA [Suspect]
     Active Substance: AFLIBERCEPT
     Dosage: UNK
     Route: 031
     Dates: start: 20200604, end: 20200604
  6. EYLEA [Suspect]
     Active Substance: AFLIBERCEPT
     Indication: DIABETIC COMPLICATION
     Dosage: SOME TIMES TWICE A MONTH, SOMETIMES JUST ONE TIME A MONTH, IN LEFT EYE
     Route: 031
     Dates: start: 2019
  7. EYLEA [Suspect]
     Active Substance: AFLIBERCEPT
     Dosage: INJECTIONS AFTER 3 WEEKS
     Route: 031
  8. METFORMIN [Concomitant]
     Active Substance: METFORMIN HYDROCHLORIDE
     Indication: PRODUCT USED FOR UNKNOWN INDICATION
     Route: 065

REACTIONS (9)
  - Ocular hypertension [Unknown]
  - Cataract [Unknown]
  - Product dose omission issue [Unknown]
  - Vision blurred [Unknown]
  - Blindness unilateral [Unknown]
  - Hypoaesthesia eye [Unknown]
  - Off label use [Unknown]
  - Eye haemorrhage [Not Recovered/Not Resolved]
  - Eye pain [Unknown]

NARRATIVE: CASE EVENT DATE: 2020
